FAERS Safety Report 8287266-5 (Version None)
Quarter: 2012Q2

REPORT INFORMATION
  Report Type: 
  Country: None (occurrence: None)
  Receive Date: 20120416
  Receipt Date: 20120416
  Transmission Date: 20120825
  Serious: Yes (Other)
  Sender: FDA-Public Use
  Company Number: None

PATIENT
  Age: 55 Year
  Sex: Female
  Weight: 73.935 kg

DRUGS (1)
  1. BONIVA [Suspect]
     Indication: BONE LOSS
     Dosage: 1 TABLET
     Route: 048
     Dates: start: 20120303, end: 20120409

REACTIONS (2)
  - CHEST DISCOMFORT [None]
  - BACK PAIN [None]
